FAERS Safety Report 10025513 (Version 1)
Quarter: 2014Q1

REPORT INFORMATION
  Report Type: Spontaneous
  Country: GB (occurrence: GB)
  Receive Date: 20140320
  Receipt Date: 20140320
  Transmission Date: 20141002
  Serious: Yes (Other)
  Sender: FDA-Public Use
  Company Number: GB-WATSON-2014-04964

PATIENT
  Age: 73 Year
  Sex: Female

DRUGS (2)
  1. VERAPAMIL (UNKNOWN) [Suspect]
     Indication: ATRIAL FIBRILLATION
     Dosage: 240 MG, DAILY
     Route: 048
     Dates: start: 20120104
  2. FERROUS SULPHATE                   /00023503/ [Concomitant]
     Indication: PRODUCT USED FOR UNKNOWN INDICATION
     Dosage: UNK
     Route: 048

REACTIONS (4)
  - Extrapyramidal disorder [Not Recovered/Not Resolved]
  - Dyskinesia [Not Recovered/Not Resolved]
  - Decreased appetite [Not Recovered/Not Resolved]
  - Ageusia [Not Recovered/Not Resolved]
